FAERS Safety Report 5596474-3 (Version None)
Quarter: 2008Q1

REPORT INFORMATION
  Report Type: 
  Country: None (occurrence: None)
  Receive Date: 20080118
  Receipt Date: 20080109
  Transmission Date: 20080703
  Serious: Yes (Other)
  Sender: FDA-Public Use
  Company Number: GB-PFIZER INC-2007107591

PATIENT
  Sex: Male
  Weight: 67 kg

DRUGS (6)
  1. CHANTIX [Suspect]
     Indication: SMOKING CESSATION THERAPY
     Route: 048
     Dates: start: 20071114, end: 20070101
  2. ANALGESICS [Suspect]
     Indication: PAIN
  3. DICLOFENAC [Concomitant]
     Route: 048
  4. DOMPERIDONE [Concomitant]
     Route: 048
  5. LANSOPRAZOLE [Concomitant]
     Route: 048
  6. OXYCODONE [Concomitant]
     Route: 048

REACTIONS (1)
  - OVERDOSE [None]
